FAERS Safety Report 10009633 (Version 2)
Quarter: 2014Q1

REPORT INFORMATION
  Report Type: Spontaneous
  Country: US (occurrence: US)
  Receive Date: 20140312
  Receipt Date: 20140312
  Transmission Date: 20141002
  Serious: No
  Sender: FDA-Public Use
  Company Number: US-INCYTE CORPORATION-2012IN002153

PATIENT
  Age: 78 Year
  Sex: Female

DRUGS (5)
  1. JAKAFI [Suspect]
     Indication: MYELOFIBROSIS
     Dosage: 5 MG, QD
     Route: 048
  2. JAKAFI [Suspect]
     Dosage: 5 MG, BID
     Route: 048
  3. JAKAFI [Suspect]
     Dosage: 5 MG, TID
     Route: 048
  4. OXYCODONE [Concomitant]
     Dosage: UNK, TID
  5. GABAPENTIN [Concomitant]
     Dosage: 1 TABLET, QHS

REACTIONS (3)
  - Hepatomegaly [Not Recovered/Not Resolved]
  - Pain [Unknown]
  - Back pain [Unknown]
